FAERS Safety Report 8821224 (Version 2)
Quarter: 2012Q4

REPORT INFORMATION
  Report Type: 
  Country: PL (occurrence: PL)
  Receive Date: 20121002
  Receipt Date: 20121102
  Transmission Date: 20130627
  Serious: Yes (Hospitalization)
  Sender: FDA-Public Use
  Company Number: PL-BRISTOL-MYERS SQUIBB COMPANY-16985947

PATIENT
  Age: 75 Year
  Sex: Female

DRUGS (1)
  1. SPRYCEL [Suspect]
     Indication: CHRONIC MYELOID LEUKAEMIA
     Dosage: Reduced to 50mg from 18Jun2012
     Dates: start: 20120522

REACTIONS (2)
  - Circulatory collapse [Recovered/Resolved]
  - Pulmonary oedema [Recovered/Resolved]
